FAERS Safety Report 8997849 (Version 1)
Quarter: 2013Q1

REPORT INFORMATION
  Report Type: Spontaneous
  Country: US (occurrence: US)
  Receive Date: 20130104
  Receipt Date: 20130104
  Transmission Date: 20140127
  Serious: Yes (Death)
  Sender: FDA-Public Use
  Company Number: CHPA2012US025962

PATIENT
  Age: 94 Year
  Sex: Male

DRUGS (1)
  1. BENEFIBER UNKNOWN [Suspect]
     Indication: GASTROINTESTINAL DISORDER
     Dosage: 3 TSP, QD
     Route: 048
     Dates: start: 2010, end: 201207

REACTIONS (2)
  - Death [Fatal]
  - Off label use [Unknown]
